FAERS Safety Report 5674354-2 (Version None)
Quarter: 2008Q2

REPORT INFORMATION
  Report Type: 
  Country: None (occurrence: None)
  Receive Date: 20080303
  Receipt Date: 20070924
  Transmission Date: 20081010
  Serious: Yes (Other)
  Sender: FDA-Public Use
  Company Number: 161852USA

PATIENT
  Sex: Female

DRUGS (1)
  1. METFORMIN HYDROCHLORIDE [Suspect]
     Dosage: 2000 MG (1000 MG, 2 IN 1 D), ORAL
     Route: 048

REACTIONS (1)
  - LACTIC ACIDOSIS [None]
